FAERS Safety Report 12497307 (Version 1)
Quarter: 2016Q2

REPORT INFORMATION
  Report Type: Spontaneous
  Country: JP (occurrence: JP)
  Receive Date: 20160624
  Receipt Date: 20160624
  Transmission Date: 20160815
  Serious: Yes (Hospitalization)
  Sender: FDA-Public Use
  Company Number: JP-PFIZER INC-2016302003

PATIENT
  Age: 82 Year
  Sex: Male

DRUGS (7)
  1. MAGNESIUM OXIDE HEAVY [Interacting]
     Active Substance: MAGNESIUM OXIDE
     Route: 048
  2. AMPICILLIN SODIUM/SULBACTAM SODIUM [Suspect]
     Active Substance: AMPICILLIN SODIUM\SULBACTAM SODIUM
     Indication: PNEUMONIA
     Route: 042
  3. VALACICLOVIR HYDROCHLORIDE [Interacting]
     Active Substance: VALACYCLOVIR HYDROCHLORIDE
     Dosage: UNK
     Route: 048
  4. OXATOMIDE [Interacting]
     Active Substance: OXATOMIDE
     Indication: PNEUMONIA
     Route: 048
  5. DICLOFENAC SODIUM. [Interacting]
     Active Substance: DICLOFENAC SODIUM
     Dosage: UNK
     Route: 048
  6. PREDNISOLONE. [Interacting]
     Active Substance: PREDNISOLONE
     Route: 048
  7. RABEPRAZOLE SODIUM. [Interacting]
     Active Substance: RABEPRAZOLE SODIUM
     Indication: PNEUMONIA
     Route: 048

REACTIONS (8)
  - Tri-iodothyronine decreased [None]
  - Glossoptosis [None]
  - Thyroxine free decreased [None]
  - Altered state of consciousness [Recovered/Resolved]
  - Hypothyroidism [None]
  - Miosis [None]
  - Blood thyroid stimulating hormone increased [None]
  - Drug interaction [Recovered/Resolved]
